FAERS Safety Report 5298253-3 (Version None)
Quarter: 2007Q1

REPORT INFORMATION
  Report Type: 
  Country: None (occurrence: None)
  Receive Date: 20070201
  Receipt Date: 20061012
  Transmission Date: 20070707
  Serious: No
  Sender: FDA-Public Use
  Company Number: 2006PV023039

PATIENT
  Age: 57 Year
  Sex: Male
  Weight: 113.3993 kg

DRUGS (7)
  1. BYETTA [Suspect]
     Dosage: SEE IMAGE
     Route: 058
     Dates: start: 20060701, end: 20060801
  2. BYETTA [Suspect]
     Dosage: SEE IMAGE
     Route: 058
     Dates: start: 20050101
  3. BYETTA [Suspect]
     Dosage: SEE IMAGE
     Route: 058
     Dates: start: 20060801
  4. ACTOS [Concomitant]
  5. METFORMIN [Concomitant]
  6. GLYBURIDE [Concomitant]
  7. LISINOPRIL [Concomitant]

REACTIONS (2)
  - BLOOD GLUCOSE INCREASED [None]
  - DEPRESSED MOOD [None]
